FAERS Safety Report 19350308 (Version 2)
Quarter: 2021Q2

REPORT INFORMATION
  Report Type: Spontaneous
  Country: US (occurrence: US)
  Receive Date: 20210531
  Receipt Date: 20210531
  Transmission Date: 20210717
  Serious: Yes (Death, Life-Threatening, Hospitalization, Other)
  Sender: FDA-Public Use
  Company Number: US-HIKMA PHARMACEUTICALS USA INC.-US-H14001-21-02430

PATIENT
  Age: 43 Year
  Sex: Female
  Weight: 59 kg

DRUGS (12)
  1. COMPAZINE [Concomitant]
     Active Substance: PROCHLORPERAZINE MALEATE
     Indication: PRODUCT USED FOR UNKNOWN INDICATION
     Route: 065
  2. ZOLBETUXIMAB. [Suspect]
     Active Substance: ZOLBETUXIMAB
     Route: 042
     Dates: start: 20191010, end: 20200131
  3. LOVENOX [Concomitant]
     Active Substance: ENOXAPARIN SODIUM
     Indication: PRODUCT USED FOR UNKNOWN INDICATION
     Dosage: UNKNOWN
     Route: 065
     Dates: end: 20200123
  4. FLUOROURACIL. [Suspect]
     Active Substance: FLUOROURACIL
     Route: 042
     Dates: start: 20191008, end: 20200131
  5. OXALIPLATIN. [Suspect]
     Active Substance: OXALIPLATIN
     Indication: METASTATIC GASTRIC CANCER
     Route: 042
     Dates: start: 20191008, end: 20200131
  6. ATIVAN [Concomitant]
     Active Substance: LORAZEPAM
     Indication: PRODUCT USED FOR UNKNOWN INDICATION
     Route: 065
  7. ULTRAM [Concomitant]
     Active Substance: TRAMADOL HYDROCHLORIDE
     Indication: PRODUCT USED FOR UNKNOWN INDICATION
     Route: 065
  8. CALCIUM FOLINATE [Suspect]
     Active Substance: LEUCOVORIN CALCIUM
     Indication: METASTATIC GASTRIC CANCER
     Route: 042
     Dates: start: 20191008, end: 20191203
  9. FLEXERIL [Concomitant]
     Active Substance: CYCLOBENZAPRINE HYDROCHLORIDE
     Indication: PRODUCT USED FOR UNKNOWN INDICATION
     Route: 065
  10. EMLA [Concomitant]
     Active Substance: LIDOCAINE\PRILOCAINE
     Indication: PRODUCT USED FOR UNKNOWN INDICATION
     Dosage: UNKNOWN
     Route: 065
  11. PRILOSEC [Concomitant]
     Active Substance: OMEPRAZOLE MAGNESIUM
     Indication: PRODUCT USED FOR UNKNOWN INDICATION
     Route: 065
  12. ZOFRAN [Concomitant]
     Active Substance: ONDANSETRON HYDROCHLORIDE
     Indication: PRODUCT USED FOR UNKNOWN INDICATION
     Route: 065

REACTIONS (20)
  - Abdominal tenderness [Unknown]
  - Dysphonia [Unknown]
  - Sensory disturbance [Unknown]
  - Visual impairment [Unknown]
  - Intracranial pressure increased [Unknown]
  - Muscular weakness [Unknown]
  - Dizziness [Unknown]
  - Pain in extremity [Unknown]
  - Dysarthria [Unknown]
  - Malignant neoplasm progression [Fatal]
  - Neuropathy peripheral [Unknown]
  - Asthenia [Unknown]
  - Toxicity to various agents [Unknown]
  - Abdominal pain [Recovered/Resolved]
  - Vertigo [Recovered/Resolved]
  - Swollen tongue [Recovered/Resolved]
  - Abdominal distension [Unknown]
  - Paresis [Unknown]
  - Deafness [Unknown]
  - Metastases to meninges [Fatal]

NARRATIVE: CASE EVENT DATE: 20200125
